FAERS Safety Report 24061612 (Version 3)
Quarter: 2024Q3

REPORT INFORMATION
  Report Type: Report from Study
  Country: US (occurrence: US)
  Receive Date: 20240708
  Receipt Date: 20240826
  Transmission Date: 20241017
  Serious: Yes (Other)
  Sender: ABBVIE
  Company Number: US-ABBVIE-5825910

PATIENT
  Age: 0 Year
  Sex: Male
  Weight: 8 kg

DRUGS (10)
  1. ORILISSA [Suspect]
     Active Substance: ELAGOLIX SODIUM
     Indication: Maternal exposure timing unspecified
     Route: 063
  2. HAEMOPHILUS INFLUENZAE TYPE B [Concomitant]
     Active Substance: HAEMOPHILUS INFLUENZAE TYPE B
     Indication: Immunisation
     Dosage: DOSE FORM: VACCINE
     Route: 065
     Dates: start: 20240402, end: 20240402
  3. HAEMOPHILUS INFLUENZAE TYPE B [Concomitant]
     Active Substance: HAEMOPHILUS INFLUENZAE TYPE B
     Indication: Immunisation
     Dosage: DOSE FORM: VACCINE
     Route: 065
     Dates: start: 20240814, end: 20240814
  4. HAEMOPHILUS INFLUENZAE TYPE B [Concomitant]
     Active Substance: HAEMOPHILUS INFLUENZAE TYPE B
     Indication: Immunisation
     Dosage: DOSE FORM: VACCINE
     Route: 065
     Dates: start: 20240203, end: 20240203
  5. PNEUMOCOCCAL VACCINE POLYVALENT NOS [Concomitant]
     Active Substance: PNEUMOCOCCAL VACCINE, POLYVALENT
     Indication: Immunisation
     Dosage: DOSE FORM: VACCINE
     Route: 065
     Dates: start: 20240402, end: 20240402
  6. PNEUMOCOCCAL VACCINE POLYVALENT NOS [Concomitant]
     Active Substance: PNEUMOCOCCAL VACCINE, POLYVALENT
     Indication: Immunisation
     Dosage: DOSE FORM: VACCINE
     Route: 065
     Dates: start: 20240814, end: 20240814
  7. POLIOMYELITIS VACCINE [Concomitant]
     Active Substance: POLIOMYELITIS VACCINE
     Indication: Immunisation
     Dosage: DOSE FORM: VACCINE
     Route: 065
     Dates: start: 20240402, end: 20240402
  8. POLIOMYELITIS VACCINE [Concomitant]
     Active Substance: POLIOMYELITIS VACCINE
     Indication: Immunisation
     Dosage: DOSE FORM: VACCINE
     Route: 065
     Dates: start: 20240814, end: 20240814
  9. DIPHTHERIA AND TETANUS TOXOIDS AND ACELLULAR PERTUSSIS VACCINE ADSORBE [Concomitant]
     Active Substance: DIPHTHERIA AND TETANUS TOXOIDS AND ACELLULAR PERTUSSIS VACCINE ADSORBED
     Indication: Immunisation
     Dosage: DOSE FORM: VACCINE
     Route: 065
     Dates: start: 20240814, end: 20240814
  10. DIPHTHERIA AND TETANUS TOXOIDS AND ACELLULAR PERTUSSIS VACCINE ADSORBE [Concomitant]
     Active Substance: DIPHTHERIA AND TETANUS TOXOIDS AND ACELLULAR PERTUSSIS VACCINE ADSORBED
     Indication: Immunisation
     Dosage: DOSE FORM: VACCINE
     Route: 065
     Dates: start: 20240402, end: 20240402

REACTIONS (2)
  - Umbilical hernia [Not Recovered/Not Resolved]
  - Exposure via breast milk [Unknown]

NARRATIVE: CASE EVENT DATE: 20240603
